FAERS Safety Report 10428693 (Version 1)
Quarter: 2014Q3

REPORT INFORMATION
  Report Type: Spontaneous
  Country: CA (occurrence: None)
  Receive Date: 20140902
  Receipt Date: 20140902
  Transmission Date: 20150326
  Serious: Yes (Death)
  Sender: FDA-Public Use
  Company Number: 201408000341

PATIENT
  Sex: Male

DRUGS (4)
  1. INOMAX [Suspect]
     Active Substance: NITRIC OXIDE
     Indication: OXYGEN SATURATION DECREASED
     Dosage: 5 PPM, CONTINUOUS, INHALATION
     Route: 055
     Dates: start: 20140430, end: 2014
  2. CEFUROXIME. [Concomitant]
     Active Substance: CEFUROXIME
  3. INOMAX [Suspect]
     Active Substance: NITRIC OXIDE
     Indication: BRONCHOPULMONARY DYSPLASIA
     Dosage: 5 PPM, CONTINUOUS, INHALATION
     Route: 055
     Dates: start: 20140430, end: 2014
  4. OXYGEN. [Concomitant]
     Active Substance: OXYGEN

REACTIONS (2)
  - Bronchopulmonary dysplasia [None]
  - Off label use [None]

NARRATIVE: CASE EVENT DATE: 20140430
